FAERS Safety Report 8948416 (Version 1)
Quarter: 2012Q4

REPORT INFORMATION
  Report Type: Spontaneous
  Country: US (occurrence: None)
  Receive Date: 20121115
  Receipt Date: 20121115
  Transmission Date: 20130627
  Serious: Yes (Hospitalization)
  Sender: FDA-Public Use
  Company Number: 7120668

PATIENT
  Age: 35 Year
  Sex: Female

DRUGS (4)
  1. GONAL-F [Suspect]
     Indication: IN VITRO FERTILIZATION
  2. CETROTIDE [Suspect]
     Indication: IN VITRO FERTILIZATION
  3. OVIDREL [Suspect]
     Indication: IN VITRO FERTILIZATION
  4. FEMARA [Suspect]
     Indication: IN VITRO FERTILIZATION
     Dosage: 1 IN 1 D

REACTIONS (3)
  - Ovarian hyperstimulation syndrome [None]
  - Haemoglobin decreased [None]
  - Haematocrit decreased [None]
